FAERS Safety Report 15137039 (Version 1)
Quarter: 2018Q3

REPORT INFORMATION
  Report Type: Spontaneous
  Country: US (occurrence: US)
  Receive Date: 20180712
  Receipt Date: 20180712
  Transmission Date: 20181010
  Serious: No
  Sender: FDA-Public Use
  Company Number: US-FOUNDATIONCONSUMERHC-2018-US-008584

PATIENT
  Age: 21 Year
  Sex: Female
  Weight: 67.59 kg

DRUGS (6)
  1. SINGULAIR UNSPECIFIED [Concomitant]
     Route: 048
  2. ALBUTEROL UNSPECIFIED [Concomitant]
     Route: 055
  3. BLACK COHOSH UNSPECIFIED [Concomitant]
     Route: 048
  4. IRON UNSPECIFIED [Concomitant]
     Route: 048
  5. PLAN B ONE?STEP [Suspect]
     Active Substance: LEVONORGESTREL
     Indication: POST COITAL CONTRACEPTION
     Dosage: 1.5MG
     Route: 048
     Dates: start: 20180401, end: 20180401
  6. CLARITIN UNSPECIFIED [Concomitant]
     Route: 048

REACTIONS (2)
  - Menstrual disorder [Not Recovered/Not Resolved]
  - Vaginal haemorrhage [Recovered/Resolved]

NARRATIVE: CASE EVENT DATE: 20180412
